FAERS Safety Report 4388422-9 (Version None)
Quarter: 2004Q3

REPORT INFORMATION
  Report Type: 
  Country: None (occurrence: None)
  Receive Date: 20040701
  Receipt Date: 20040218
  Transmission Date: 20050211
  Serious: Yes (Hospitalization)
  Sender: FDA-Public Use
  Company Number: US-ROCHE-367265

PATIENT
  Age: 49 Year
  Sex: Male
  Weight: 192.8 kg

DRUGS (3)
  1. PEGASYS [Suspect]
     Indication: DRUG USE FOR UNKNOWN INDICATION
     Route: 058
     Dates: start: 20030821, end: 20040116
  2. COPEGUS [Suspect]
     Indication: DRUG USE FOR UNKNOWN INDICATION
     Route: 048
     Dates: start: 20030821, end: 20040116
  3. LACTULOSE [Concomitant]

REACTIONS (10)
  - ASTHENIA [None]
  - HYPERAMMONAEMIA [None]
  - INSOMNIA [None]
  - LETHARGY [None]
  - MENTAL STATUS CHANGES [None]
  - OLIGURIA [None]
  - PANCYTOPENIA [None]
  - PITTING OEDEMA [None]
  - PLATELET COUNT DECREASED [None]
  - PYREXIA [None]
